FAERS Safety Report 4792910-0 (Version None)
Quarter: 2005Q4

REPORT INFORMATION
  Report Type: 
  Country: None (occurrence: None)
  Receive Date: 20051010
  Receipt Date: 20050824
  Transmission Date: 20060501
  Serious: Yes (Death, Hospitalization)
  Sender: FDA-Public Use
  Company Number: DE-ROCHE-415517

PATIENT
  Age: 59 Year
  Sex: Female

DRUGS (6)
  1. DACLIZUMAB [Suspect]
     Route: 042
     Dates: start: 20050809, end: 20050809
  2. DACLIZUMAB [Suspect]
     Route: 042
     Dates: start: 20050815, end: 20050815
  3. MYCOPHENOLATE MOFETIL [Suspect]
     Route: 042
     Dates: start: 20050808, end: 20050909
  4. TACROLIMUS [Suspect]
     Dosage: DOSE ADJUSTED TO REACH PREDEFINED TARGET LEVELS.
     Route: 048
     Dates: start: 20050813
  5. METHYLPREDNISOLONE [Suspect]
     Route: 065
     Dates: start: 20050808
  6. PREDNISONE [Suspect]
     Dosage: TAPERED BACK TO MAINTENANCE AFTER TREATMENT OF REJECTION.
     Route: 065
     Dates: start: 20050809

REACTIONS (7)
  - ASCITES [None]
  - ASPERGILLOSIS [None]
  - CANDIDIASIS [None]
  - HAEMATOMA INFECTION [None]
  - POST PROCEDURAL COMPLICATION [None]
  - SEPSIS [None]
  - WOUND DEHISCENCE [None]
